FAERS Safety Report 12442683 (Version 1)
Quarter: 2016Q2

REPORT INFORMATION
  Report Type: Spontaneous
  Country: US (occurrence: US)
  Receive Date: 20160607
  Receipt Date: 20160607
  Transmission Date: 20160815
  Serious: Yes (Other)
  Sender: FDA-Public Use
  Company Number: US-DRREDDYS-USA/USA/16/0080316

PATIENT
  Age: 18 Year
  Sex: Male

DRUGS (2)
  1. DIPHENHYDRAMINE. [Suspect]
     Active Substance: DIPHENHYDRAMINE
     Indication: PRODUCT USED FOR UNKNOWN INDICATION
     Route: 065
  2. QUETIAPINE FUMARATE TABLETS [Suspect]
     Active Substance: QUETIAPINE FUMARATE
     Indication: PRODUCT USED FOR UNKNOWN INDICATION
     Route: 065

REACTIONS (9)
  - Metabolic acidosis [Unknown]
  - Electrocardiogram QT prolonged [Unknown]
  - Acute respiratory distress syndrome [Unknown]
  - Hypotension [Unknown]
  - Coma [Unknown]
  - Seizure [Unknown]
  - Toxicity to various agents [Unknown]
  - Bradycardia [Unknown]
  - Arrhythmia [Unknown]
